FAERS Safety Report 12376447 (Version 1)
Quarter: 2016Q2

REPORT INFORMATION
  Report Type: Spontaneous
  Country: US (occurrence: US)
  Receive Date: 20160517
  Receipt Date: 20160517
  Transmission Date: 20160815
  Serious: No
  Sender: FDA-Public Use
  Company Number: US-TEIKOKU PHARMA USA-TPU2016-00168

PATIENT
  Sex: Female
  Weight: 56.75 kg

DRUGS (10)
  1. VALIUM [Concomitant]
     Active Substance: DIAZEPAM
     Indication: DEPRESSION
     Dates: start: 2006
  2. LIDODERM [Suspect]
     Active Substance: LIDOCAINE
     Indication: NEURALGIA
  3. LIDODERM [Suspect]
     Active Substance: LIDOCAINE
     Indication: PAIN
  4. SOMA [Concomitant]
     Active Substance: CARISOPRODOL
  5. VALIUM [Concomitant]
     Active Substance: DIAZEPAM
     Indication: ANXIETY
  6. LIDODERM [Suspect]
     Active Substance: LIDOCAINE
     Indication: SPINAL FUSION SURGERY
  7. MORPHINE SULFATE. [Concomitant]
     Active Substance: MORPHINE SULFATE
     Indication: PAIN
     Dosage: 1 TABLET IN MORNING AND 1 TABLET AT NIGHT
     Dates: start: 2006
  8. LIDODERM [Suspect]
     Active Substance: LIDOCAINE
     Indication: PROCEDURAL PAIN
     Route: 061
  9. LIDODERM [Suspect]
     Active Substance: LIDOCAINE
     Indication: BONE PAIN
  10. LIDODERM [Suspect]
     Active Substance: LIDOCAINE
     Indication: PAIN IN EXTREMITY

REACTIONS (2)
  - Spinal fusion fracture [Unknown]
  - Fall [Unknown]

NARRATIVE: CASE EVENT DATE: 2006
